FAERS Safety Report 6911492-8 (Version None)
Quarter: 2010Q3

REPORT INFORMATION
  Report Type: 
  Country: None (occurrence: None)
  Receive Date: 20100806
  Receipt Date: 20100726
  Transmission Date: 20110219
  Serious: Yes (Hospitalization)
  Sender: FDA-Public Use
  Company Number: DE-ELI_LILLY_AND_COMPANY-DE201007006594

PATIENT
  Age: 76 Year
  Sex: Male

DRUGS (8)
  1. CIALIS [Suspect]
     Indication: ERECTILE DYSFUNCTION
     Dosage: 5 MG, UNKNOWN
     Route: 048
     Dates: start: 20100101, end: 20100101
  2. CIALIS [Suspect]
     Dosage: 5 MG, UNKNOWN
     Route: 048
     Dates: start: 20100101
  3. PROTAPHANE [Concomitant]
     Dosage: UNK, UNKNOWN
     Route: 065
  4. ASPIRIN [Concomitant]
     Dosage: UNK, UNKNOWN
     Route: 065
  5. BISOPROLOL [Concomitant]
     Dosage: UNK, UNKNOWN
     Route: 065
  6. CIPRALEX [Concomitant]
     Dosage: UNK, UNKNOWN
     Route: 065
  7. DIOVAN HCT [Concomitant]
     Dosage: UNK, UNKNOWN
     Route: 065
  8. NORVASC [Concomitant]
     Dosage: UNK, UNKNOWN
     Route: 065

REACTIONS (2)
  - HOSPITALISATION [None]
  - OEDEMA PERIPHERAL [None]
